FAERS Safety Report 7765124-X (Version None)
Quarter: 2011Q3

REPORT INFORMATION
  Report Type: 
  Country: None (occurrence: None)
  Receive Date: 20110921
  Receipt Date: 20110915
  Transmission Date: 20111222
  Serious: Yes (Life-Threatening, Hospitalization)
  Sender: FDA-Public Use
  Company Number: DE-ROCHE-803382

PATIENT
  Age: 75 Year
  Sex: Male
  Weight: 58 kg

DRUGS (2)
  1. CAPECITABINE [Suspect]
     Indication: COLORECTAL CANCER METASTATIC
     Dosage: LAST DOSE PRIOR TO SAE: 31 AUGUST 2011
     Route: 054
     Dates: start: 20110817, end: 20110831
  2. BEVACIZUMAB [Suspect]
     Indication: COLORECTAL CANCER METASTATIC
     Dosage: LAST DOSE PRIOR TO SAE: 17 AUGUST 2011
     Route: 042
     Dates: start: 20110817, end: 20110907

REACTIONS (4)
  - WEIGHT DECREASED [None]
  - TUMOUR INVASION [None]
  - HAEMATEMESIS [None]
  - NAUSEA [None]
